FAERS Safety Report 16356554 (Version 1)
Quarter: 2019Q2

REPORT INFORMATION
  Report Type: Spontaneous
  Country: DE (occurrence: DE)
  Receive Date: 20190527
  Receipt Date: 20190527
  Transmission Date: 20190711
  Serious: Yes (Death, Other)
  Sender: FDA-Public Use
  Company Number: DE-009507513-1905DEU010170

PATIENT
  Age: 70 Year
  Sex: Male

DRUGS (6)
  1. DIAZEPAM. [Interacting]
     Active Substance: DIAZEPAM
     Dosage: 5 MG, QD
  2. CIPRALEX [Interacting]
     Active Substance: ESCITALOPRAM OXALATE
     Dosage: 10 MG, QD
     Dates: start: 20081224
  3. SEROQUEL [Interacting]
     Active Substance: QUETIAPINE FUMARATE
     Dosage: SLOWLY TITRATED FROM 13-DEC-2008
     Dates: start: 20081222
  4. ERGENYL CHRONO [Interacting]
     Active Substance: VALPROIC ACID
     Dosage: 1000 MG, QD
     Dates: start: 20081213
  5. REMERGIL SOLTAB [Suspect]
     Active Substance: MIRTAZAPINE
     Dosage: 30 MG, QD
     Dates: start: 20081224
  6. HALDOL [Interacting]
     Active Substance: HALOPERIDOL
     Dosage: 10 MG, QD
     Dates: start: 20081204

REACTIONS (1)
  - Death [Fatal]

NARRATIVE: CASE EVENT DATE: 20090107
